FAERS Safety Report 7637607-4 (Version None)
Quarter: 2011Q3

REPORT INFORMATION
  Report Type: 
  Country: None (occurrence: None)
  Receive Date: 20110726
  Receipt Date: 20110719
  Transmission Date: 20111222
  Serious: Yes (Other)
  Sender: FDA-Public Use
  Company Number: PHHY2011RO64571

PATIENT
  Sex: Female

DRUGS (3)
  1. OMEZ [Concomitant]
     Indication: GASTRITIS
     Dosage: 1 DF, TID
  2. PENICILLIN V [Suspect]
     Indication: PYREXIA
     Dosage: 3000 MG, DAILY
     Route: 048
  3. NO-SPA [Concomitant]
     Indication: PAIN
     Dosage: 1 DF, BID

REACTIONS (4)
  - PRURITUS [None]
  - FACE OEDEMA [None]
  - BLOOD PRESSURE INCREASED [None]
  - HYPERSENSITIVITY [None]
